FAERS Safety Report 21325460 (Version 1)
Quarter: 2022Q3

REPORT INFORMATION
  Report Type: Spontaneous
  Country: US (occurrence: US)
  Receive Date: 20220912
  Receipt Date: 20220912
  Transmission Date: 20221026
  Serious: No
  Sender: FDA-Public Use
  Company Number: US-SANOFI-01271100

PATIENT
  Age: 59 Year

DRUGS (1)
  1. DUPIXENT [Suspect]
     Active Substance: DUPILUMAB
     Indication: Nasal polyps
     Dosage: UNK
     Dates: start: 202208

REACTIONS (3)
  - Eyelid margin crusting [Unknown]
  - Erythema of eyelid [Unknown]
  - Blepharitis [Unknown]

NARRATIVE: CASE EVENT DATE: 20220101
